FAERS Safety Report 18916713 (Version 2)
Quarter: 2021Q1

REPORT INFORMATION
  Report Type: Report from Study
  Country: IL (occurrence: IL)
  Receive Date: 20210219
  Receipt Date: 20210222
  Transmission Date: 20210420
  Serious: Yes (Hospitalization)
  Sender: FDA-Public Use
  Company Number: IL-EISAI MEDICAL RESEARCH-EC-2021-088264

PATIENT
  Age: 71 Year
  Sex: Male
  Weight: 57.7 kg

DRUGS (11)
  1. PERCOCET [Concomitant]
     Active Substance: ACETAMINOPHEN\OXYCODONE HYDROCHLORIDE
     Dates: start: 20201015
  2. PREDNISONE. [Concomitant]
     Active Substance: PREDNISONE
     Dates: start: 20201220
  3. LENVATINIB [Suspect]
     Active Substance: LENVATINIB
     Route: 048
     Dates: start: 20210131
  4. PEMBROLIZUMAB. [Suspect]
     Active Substance: PEMBROLIZUMAB
     Route: 041
     Dates: start: 20210131, end: 20210131
  5. PEMBROLIZUMAB. [Suspect]
     Active Substance: PEMBROLIZUMAB
     Indication: NON-SMALL CELL LUNG CANCER METASTATIC
     Route: 041
     Dates: start: 20201118, end: 20210110
  6. VITAMINS (UNSPECIFIED) [Concomitant]
     Active Substance: VITAMINS
     Dates: start: 202006
  7. OMEPRADEX [Concomitant]
     Active Substance: OMEPRAZOLE
     Dates: start: 20201209
  8. LENVATINIB [Suspect]
     Active Substance: LENVATINIB
     Indication: NON-SMALL CELL LUNG CANCER METASTATIC
     Dosage: FLUCTUATED DOSE
     Route: 048
     Dates: start: 20201118, end: 20210130
  9. CANNABIS SATIVA [Concomitant]
     Active Substance: CANNABIS SATIVA FLOWERING TOP
     Dates: start: 201911
  10. XARELTO [Concomitant]
     Active Substance: RIVAROXABAN
     Dates: start: 20201202
  11. OPTALGIN [Concomitant]
     Active Substance: METAMIZOLE
     Dates: start: 20200510

REACTIONS (1)
  - Dyspnoea [Not Recovered/Not Resolved]

NARRATIVE: CASE EVENT DATE: 20210214
